FAERS Safety Report 13929955 (Version 2)
Quarter: 2017Q4

REPORT INFORMATION
  Report Type: Report from Study
  Country: US (occurrence: US)
  Receive Date: 20170901
  Receipt Date: 20171229
  Transmission Date: 20180320
  Serious: No
  Sender: FDA-Public Use
  Company Number: PHEH2017US027666

PATIENT
  Sex: Female

DRUGS (1)
  1. OMNITROPE [Suspect]
     Active Substance: SOMATROPIN
     Indication: GROWTH RETARDATION
     Dosage: 2 MG, 7 DAYS A WEEK
     Route: 058
     Dates: start: 201509

REACTIONS (3)
  - Injection site pain [Recovered/Resolved]
  - Screaming [Recovered/Resolved]
  - Product container issue [Unknown]
